FAERS Safety Report 8509116-1 (Version None)
Quarter: 2012Q3

REPORT INFORMATION
  Report Type: 
  Country: None (occurrence: None)
  Receive Date: 20120713
  Receipt Date: 20120703
  Transmission Date: 20120928
  Serious: Yes (Hospitalization)
  Sender: FDA-Public Use
  Company Number: US-GLAXOSMITHKLINE-A0891023A

PATIENT
  Age: 70 Year
  Sex: Male

DRUGS (1)
  1. AVANDIA [Suspect]
     Indication: DIABETES MELLITUS
     Route: 048
     Dates: start: 20020311, end: 20100101

REACTIONS (4)
  - HYPOAESTHESIA [None]
  - CEREBROVASCULAR ACCIDENT [None]
  - AMNESIA [None]
  - SUBDURAL HAEMATOMA [None]
